FAERS Safety Report 10764062 (Version 3)
Quarter: 2015Q2

REPORT INFORMATION
  Report Type: Report from Study
  Country: DE (occurrence: DE)
  Receive Date: 20150204
  Receipt Date: 20150527
  Transmission Date: 20150821
  Serious: Yes (Death, Hospitalization, Other)
  Sender: FDA-Public Use
  Company Number: DE-ABBVIE-15P-062-1342338-00

PATIENT
  Age: 61 Year
  Sex: Male
  Weight: 70 kg

DRUGS (4)
  1. ZOMETA [Concomitant]
     Active Substance: ZOLEDRONIC ACID
     Indication: PRODUCT USED FOR UNKNOWN INDICATION
  2. MORPHINE [Concomitant]
     Active Substance: MORPHINE
     Indication: PRODUCT USED FOR UNKNOWN INDICATION
  3. LEUPRORELIN [Suspect]
     Active Substance: LEUPROLIDE ACETATE
     Indication: PROSTATE CANCER
     Route: 058
     Dates: start: 20120412, end: 20121019
  4. BICALUTAMIDE. [Concomitant]
     Active Substance: BICALUTAMIDE
     Indication: PRODUCT USED FOR UNKNOWN INDICATION

REACTIONS (7)
  - Pyrexia [Unknown]
  - General physical health deterioration [Unknown]
  - Prostate cancer [Fatal]
  - Metastases to bone [Fatal]
  - Inflammatory marker increased [Unknown]
  - Haematuria [Unknown]
  - Anaemia [Unknown]

NARRATIVE: CASE EVENT DATE: 20120810
